FAERS Safety Report 9646055 (Version 2)
Quarter: 2013Q4

REPORT INFORMATION
  Report Type: Spontaneous
  Country: US (occurrence: US)
  Receive Date: 20131025
  Receipt Date: 20131226
  Transmission Date: 20140711
  Serious: Yes (Other)
  Sender: FDA-Public Use
  Company Number: US-PFIZER INC-2013305765

PATIENT
  Age: 64 Year
  Sex: Male
  Weight: 113 kg

DRUGS (7)
  1. LYRICA [Suspect]
     Indication: DIABETIC NEUROPATHY
     Dosage: 150 MG, 3X/DAY
     Route: 048
  2. BENADRYL [Interacting]
     Dosage: UNK
  3. JANUMET [Concomitant]
     Dosage: 50/1000 MG/MG, 2X/DAY
  4. TRICOR [Concomitant]
     Dosage: UNK
  5. MICARDIS HCT [Concomitant]
     Dosage: 80/25 MG/MG, 1X/DAY
  6. NEXIUM [Concomitant]
     Dosage: UNK
  7. VITAMIN B12 [Concomitant]
     Dosage: UNK

REACTIONS (11)
  - Neoplasm malignant [Unknown]
  - Drug interaction [Unknown]
  - Drug ineffective [Unknown]
  - Pain in extremity [Unknown]
  - Paraesthesia [Unknown]
  - Agitation [Unknown]
  - Feeling abnormal [Unknown]
  - Muscle spasticity [Unknown]
  - Gastric disorder [Unknown]
  - Haemoglobin decreased [Unknown]
  - Blood creatinine increased [Unknown]
